FAERS Safety Report 25418894 (Version 2)
Quarter: 2025Q2

REPORT INFORMATION
  Report Type: Report from Study
  Country: US (occurrence: US)
  Receive Date: 20250610
  Receipt Date: 20250627
  Transmission Date: 20250716
  Serious: Yes (Hospitalization, Other)
  Sender: TAKEDA
  Company Number: US-TAKEDA-2025TUS053251

PATIENT
  Sex: Female
  Weight: 103 kg

DRUGS (17)
  1. HUMAN IMMUNOGLOBULIN G [Suspect]
     Active Substance: HUMAN IMMUNOGLOBULIN G
     Indication: Immunodeficiency common variable
     Dosage: 12 GRAM, 1/WEEK
  2. EPINEPHRINE [Concomitant]
     Active Substance: EPINEPHRINE
  3. LEVOTHYROXINE SODIUM [Concomitant]
     Active Substance: LEVOTHYROXINE SODIUM
  4. MELOXICAM [Concomitant]
     Active Substance: MELOXICAM
  5. WEGOVY [Concomitant]
     Active Substance: SEMAGLUTIDE
  6. EZETIMIBE [Concomitant]
     Active Substance: EZETIMIBE
  7. PROTONIX [Concomitant]
     Active Substance: PANTOPRAZOLE SODIUM
  8. ASPIRIN [Concomitant]
     Active Substance: ASPIRIN
  9. Calcium plus d3 [Concomitant]
  10. METOPROLOL SUCCINATE [Concomitant]
     Active Substance: METOPROLOL SUCCINATE
  11. PREGABALIN [Concomitant]
     Active Substance: PREGABALIN
  12. EPIPEN [Concomitant]
     Active Substance: EPINEPHRINE
  13. FENOFIBRATE [Concomitant]
     Active Substance: FENOFIBRATE
  14. MONTELUKAST SODIUM [Concomitant]
     Active Substance: MONTELUKAST SODIUM
  15. NEXLETOL [Concomitant]
     Active Substance: BEMPEDOIC ACID
  16. DIPHENHYDRAMINE HYDROCHLORIDE [Concomitant]
     Active Substance: DIPHENHYDRAMINE HYDROCHLORIDE
  17. VALSARTAN [Concomitant]
     Active Substance: VALSARTAN

REACTIONS (6)
  - Electrolyte imbalance [Unknown]
  - Dehydration [Unknown]
  - Blood pressure decreased [Unknown]
  - Diverticulitis [Unknown]
  - Vitamin B12 decreased [Unknown]
  - Blood test abnormal [Unknown]
